FAERS Safety Report 11789885 (Version 1)
Quarter: 2015Q4

REPORT INFORMATION
  Report Type: Spontaneous
  Country: US (occurrence: None)
  Receive Date: 20151130
  Receipt Date: 20151130
  Transmission Date: 20160305
  Serious: No
  Sender: FDA-Public Use
  Company Number: None

PATIENT
  Age: 42 Year
  Sex: Female

DRUGS (7)
  1. AMPYRA [Suspect]
     Active Substance: DALFAMPRIDINE
     Indication: MULTIPLE SCLEROSIS
     Route: 048
     Dates: start: 20150403, end: 20151015
  2. AMPYRA [Concomitant]
     Active Substance: DALFAMPRIDINE
  3. ESCITALOPRAM [Concomitant]
     Active Substance: ESCITALOPRAM OXALATE
  4. TROSPIUM [Concomitant]
     Active Substance: TROSPIUM
  5. OXYBUTYNIN [Concomitant]
     Active Substance: OXYBUTYNIN
  6. TECFIDERA [Concomitant]
     Active Substance: DIMETHYL FUMARATE
  7. BUPROPION. [Concomitant]
     Active Substance: BUPROPION

REACTIONS (1)
  - Drug ineffective [None]

NARRATIVE: CASE EVENT DATE: 20151015
